FAERS Safety Report 5355978-9 (Version None)
Quarter: 2007Q2

REPORT INFORMATION
  Report Type: 
  Country: None (occurrence: None)
  Receive Date: 20070613
  Receipt Date: 20070605
  Transmission Date: 20071010
  Serious: Yes (Other)
  Sender: FDA-Public Use
  Company Number: US-BRISTOL-MYERS SQUIBB COMPANY-13793963

PATIENT
  Age: 36 Year
  Sex: Male

DRUGS (1)
  1. ENTECAVIR TABS 0.5 MG [Suspect]
     Dates: start: 20060801

REACTIONS (2)
  - BLOOD HIV RNA DECREASED [None]
  - DRUG RESISTANCE [None]
